FAERS Safety Report 25628771 (Version 3)
Quarter: 2025Q3

REPORT INFORMATION
  Report Type: Spontaneous
  Country: US (occurrence: US)
  Receive Date: 20250731
  Receipt Date: 20250807
  Transmission Date: 20251021
  Serious: No
  Sender: BIOGEN
  Company Number: US-BIOGEN-2025BI01318627

PATIENT
  Sex: Female

DRUGS (35)
  1. AVONEX [Suspect]
     Active Substance: INTERFERON BETA-1A
     Indication: Multiple sclerosis
     Route: 050
     Dates: start: 19970401
  2. AVONEX [Suspect]
     Active Substance: INTERFERON BETA-1A
  3. AVONEX [Suspect]
     Active Substance: INTERFERON BETA-1A
  4. AVONEX [Suspect]
     Active Substance: INTERFERON BETA-1A
  5. VERAPAMIL HCL [Concomitant]
     Active Substance: VERAPAMIL HYDROCHLORIDE
     Route: 050
  6. NITROFURANTOIN [Concomitant]
     Active Substance: NITROFURANTOIN
     Route: 050
  7. BUPROPION HYDROCHLORIDE [Concomitant]
     Active Substance: BUPROPION HYDROCHLORIDE
     Route: 050
  8. BACLOFEN [Concomitant]
     Active Substance: BACLOFEN
     Route: 050
  9. DYAZIDE [Concomitant]
     Active Substance: HYDROCHLOROTHIAZIDE\TRIAMTERENE
     Route: 050
  10. LORAZEPAM [Concomitant]
     Active Substance: LORAZEPAM
     Route: 050
  11. IMITREX [Concomitant]
     Active Substance: SUMATRIPTAN SUCCINATE
     Route: 050
  12. MAGNESIUM GLUCONATE [Concomitant]
     Active Substance: MAGNESIUM GLUCONATE
     Route: 050
  13. MINERALS\VITAMINS [Concomitant]
     Active Substance: MINERALS\VITAMINS
     Route: 050
  14. OMEGA-3 ACIDS [Concomitant]
     Active Substance: OMEGA-3 FATTY ACIDS
     Route: 050
  15. CRANBERRY [Concomitant]
     Active Substance: CRANBERRY
     Route: 050
  16. KRILL OIL [Concomitant]
     Active Substance: DIETARY SUPPLEMENT\KRILL OIL
     Route: 050
  17. VITAMIN D3 [Concomitant]
     Active Substance: CHOLECALCIFEROL
     Route: 050
  18. DIMENHYDRINATE [Concomitant]
     Active Substance: DIMENHYDRINATE
     Route: 050
  19. IBUPROFEN [Concomitant]
     Active Substance: IBUPROFEN
     Route: 050
  20. GOODSENSE ASPIRIN ADULT [Concomitant]
     Route: 050
  21. PANTOPRAZOLE SODIUM [Concomitant]
     Active Substance: PANTOPRAZOLE SODIUM
     Route: 050
  22. VIIBRYD [Concomitant]
     Active Substance: VILAZODONE HYDROCHLORIDE
     Route: 050
  23. ARICEPT [Concomitant]
     Active Substance: DONEPEZIL HYDROCHLORIDE
     Route: 050
  24. MYRBETRIQ [Concomitant]
     Active Substance: MIRABEGRON
     Route: 050
  25. SUPER B-COMPLEX [Concomitant]
     Route: 050
  26. VITAMIN C [Concomitant]
     Active Substance: ASCORBIC ACID
     Route: 050
  27. CALCIUM [Concomitant]
     Active Substance: CALCIUM
     Route: 050
  28. MECLIZINE HYDROCHLORIDE [Concomitant]
     Active Substance: MECLIZINE HYDROCHLORIDE
     Route: 050
  29. MELATONIN [Concomitant]
     Active Substance: MELATONIN
     Route: 050
  30. TYLENOL EXTRA STRENGTH [Concomitant]
     Active Substance: ACETAMINOPHEN
     Route: 050
  31. ONDANSETRON HYDROCHLORIDE [Concomitant]
     Active Substance: ONDANSETRON HYDROCHLORIDE
     Route: 050
  32. KEFLEX [Concomitant]
     Active Substance: CEPHALEXIN
     Route: 050
  33. LORATADINE [Concomitant]
     Active Substance: LORATADINE
     Route: 050
  34. MOVANTIK [Concomitant]
     Active Substance: NALOXEGOL OXALATE
     Route: 050
  35. DOXYCYCLINE HYCLATE [Concomitant]
     Active Substance: DOXYCYCLINE HYCLATE
     Route: 050

REACTIONS (3)
  - Product dose omission issue [Unknown]
  - Memory impairment [Unknown]
  - Influenza like illness [Unknown]
